FAERS Safety Report 24123483 (Version 1)
Quarter: 2024Q3

REPORT INFORMATION
  Report Type: Spontaneous
  Country: US (occurrence: US)
  Receive Date: 20240723
  Receipt Date: 20240723
  Transmission Date: 20241016
  Serious: No
  Sender: OTSUKA
  Company Number: US-OTSUKA-2023_031024

PATIENT
  Sex: Female

DRUGS (3)
  1. REXULTI [Suspect]
     Active Substance: BREXPIPRAZOLE
     Indication: Product used for unknown indication
     Dosage: 1 MG (IN THE MORNING)
     Route: 065
  2. REXULTI [Suspect]
     Active Substance: BREXPIPRAZOLE
     Dosage: 1 MG (EXTRA DOSE AT NIGHT)
     Route: 065
     Dates: start: 20231127
  3. DULOXETINE [Suspect]
     Active Substance: DULOXETINE
     Indication: Product used for unknown indication
     Dosage: 90 MG (AT NIGHT)
     Route: 065

REACTIONS (3)
  - Panic reaction [Recovered/Resolved]
  - Nervousness [Unknown]
  - Wrong dose [Unknown]

NARRATIVE: CASE EVENT DATE: 20231127
